FAERS Safety Report 5297290-2 (Version None)
Quarter: 2007Q2

REPORT INFORMATION
  Report Type: 
  Country: None (occurrence: None)
  Receive Date: 20070410
  Receipt Date: 20070410
  Transmission Date: 20071010
  Serious: Yes (Other)
  Sender: FDA-Public Use
  Company Number: None

PATIENT
  Sex: Female
  Weight: 102.0593 kg

DRUGS (2)
  1. TRAMADOL HCL [Suspect]
     Indication: FIBROMYALGIA
     Dosage: 50MG QID
  2. TRAMADOL HCL [Suspect]
     Indication: OSTEOARTHRITIS
     Dosage: 50MG QID

REACTIONS (3)
  - NAUSEA [None]
  - PHARMACEUTICAL PRODUCT COMPLAINT [None]
  - VOMITING [None]
